FAERS Safety Report 4977637-4 (Version None)
Quarter: 2006Q2

REPORT INFORMATION
  Report Type: 
  Country: None (occurrence: None)
  Receive Date: 20060420
  Receipt Date: 20050909
  Transmission Date: 20061013
  Serious: No
  Sender: FDA-Public Use
  Company Number: US-GLAXOSMITHKLINE-A0573575A

PATIENT
  Age: 35 Year
  Sex: Male

DRUGS (4)
  1. ESKALITH [Suspect]
     Dosage: 300MG THREE TIMES PER DAY
     Route: 048
     Dates: start: 20050301, end: 20050101
  2. ZOLOFT [Concomitant]
  3. SEROQUEL [Concomitant]
  4. WELLBUTRIN [Concomitant]

REACTIONS (2)
  - SLEEP DISORDER [None]
  - VOMITING [None]
